FAERS Safety Report 4622933-3 (Version None)
Quarter: 2005Q1

REPORT INFORMATION
  Report Type: 
  Country: None (occurrence: None)
  Receive Date: 20050330
  Receipt Date: 20050322
  Transmission Date: 20050727
  Serious: Yes (Hospitalization)
  Sender: FDA-Public Use
  Company Number: PHBS2005SE04055

PATIENT
  Sex: Male

DRUGS (5)
  1. LANSOPRAZOLE [Concomitant]
     Dosage: 15 MG/DAY
     Route: 065
  2. ATACAND [Concomitant]
     Dosage: 8 MG/DAY
     Route: 065
  3. IMIGRAN [Concomitant]
     Dosage: PRN
     Route: 065
  4. TEGRETOL [Suspect]
     Indication: TRIGEMINAL NEURALGIA
     Dosage: 600 MG/DAY
     Route: 048
     Dates: start: 19920320
  5. TEGRETOL [Suspect]
     Route: 048
     Dates: end: 20041101

REACTIONS (2)
  - FRACTURE [None]
  - OSTEOPOROSIS [None]
